FAERS Safety Report 7934711-8 (Version None)
Quarter: 2011Q4

REPORT INFORMATION
  Report Type: 
  Country: None (occurrence: None)
  Receive Date: 20111122
  Receipt Date: 20111114
  Transmission Date: 20120403
  Serious: Yes (Hospitalization)
  Sender: FDA-Public Use
  Company Number: US-ABBOTT-11P-163-0873790-00

PATIENT
  Sex: Female
  Weight: 79.45 kg

DRUGS (4)
  1. RISPERDAL [Concomitant]
     Indication: DEPRESSION
  2. METOPROLOL TARTRATE [Concomitant]
     Indication: HYPERTENSION
  3. CELEXA [Concomitant]
     Indication: DEPRESSION
  4. CREON [Suspect]
     Indication: PANCREATITIS CHRONIC
     Dosage: UNKNOWN DOSES - TAKES EVERY 6 HOURS
     Dates: start: 20110101

REACTIONS (7)
  - PANCREATITIS CHRONIC [None]
  - VOMITING [None]
  - TREATMENT NONCOMPLIANCE [None]
  - ABDOMINAL PAIN [None]
  - BLOOD POTASSIUM DECREASED [None]
  - WEIGHT DECREASED [None]
  - NAUSEA [None]
